FAERS Safety Report 16849713 (Version 1)
Quarter: 2019Q3

REPORT INFORMATION
  Report Type: Spontaneous
  Country: HR (occurrence: HR)
  Receive Date: 20190925
  Receipt Date: 20190925
  Transmission Date: 20191005
  Serious: Yes (Other)
  Sender: FDA-Public Use
  Company Number: PHHY2019HR218176

PATIENT
  Sex: Male
  Weight: 85 kg

DRUGS (6)
  1. INDOMETHACIN. [Concomitant]
     Active Substance: INDOMETHACIN
     Indication: PRODUCT USED FOR UNKNOWN INDICATION
     Dosage: UNK, PRN (1-2 CAPSULES AS NEEDED)
     Route: 065
  2. RAVEL [Concomitant]
     Indication: HYPERTENSION
     Dosage: UNK
     Route: 065
  3. EBETREXAT [Suspect]
     Active Substance: METHOTREXATE SODIUM
     Indication: PSORIASIS
     Dosage: 15 MG, QW
     Route: 065
     Dates: start: 201612
  4. SALAZOPYRIN [Concomitant]
     Active Substance: SULFASALAZINE
     Indication: PRODUCT USED FOR UNKNOWN INDICATION
     Dosage: 2 DF, QD
     Route: 065
  5. ALLOPURINOL. [Concomitant]
     Active Substance: ALLOPURINOL
     Indication: PRODUCT USED FOR UNKNOWN INDICATION
     Dosage: 1 DF, QD
     Route: 065
  6. METHOTREXATE. [Suspect]
     Active Substance: METHOTREXATE
     Indication: PSORIASIS
     Dosage: 15 MG, QW
     Route: 065
     Dates: start: 2011, end: 201612

REACTIONS (7)
  - Nausea [Recovered/Resolved]
  - Nail dystrophy [Unknown]
  - Psoriasis [Recovering/Resolving]
  - Sweat gland tumour [Unknown]
  - Tuberculosis [Unknown]
  - Rash papular [Unknown]
  - Erythema [Unknown]

NARRATIVE: CASE EVENT DATE: 2016
